FAERS Safety Report 18410923 (Version 1)
Quarter: 2020Q4

REPORT INFORMATION
  Report Type: Spontaneous
  Country: KR (occurrence: KR)
  Receive Date: 20201021
  Receipt Date: 20201021
  Transmission Date: 20210114
  Serious: Yes (Hospitalization)
  Sender: FDA-Public Use
  Company Number: KR-PFIZER INC-2020405175

PATIENT
  Age: 69 Year
  Sex: Male

DRUGS (5)
  1. MANIDIPINE [Interacting]
     Active Substance: MANIDIPINE
     Indication: HYPERTENSION
     Dosage: UNK
     Dates: start: 2020
  2. PROPRANOLOL [Concomitant]
     Active Substance: PROPRANOLOL HYDROCHLORIDE
     Indication: HYPERTENSION
     Dosage: UNK
     Dates: start: 2020
  3. METFORMIN [Concomitant]
     Active Substance: METFORMIN HYDROCHLORIDE
     Indication: DIABETES MELLITUS
     Dosage: UNK
  4. VORICONAZOLE. [Suspect]
     Active Substance: VORICONAZOLE
     Indication: BRONCHOPULMONARY ASPERGILLOSIS
     Dosage: 100 MG, 2X/DAY
     Dates: start: 2020
  5. GLIMEPIRIDE. [Concomitant]
     Active Substance: GLIMEPIRIDE
     Indication: DIABETES MELLITUS
     Dosage: UNK

REACTIONS (4)
  - Drug interaction [Unknown]
  - Hyponatraemia [Unknown]
  - Azotaemia [Unknown]
  - Hyperkalaemia [Unknown]
